FAERS Safety Report 5287559-X (Version None)
Quarter: 2007Q1

REPORT INFORMATION
  Report Type: 
  Country: None (occurrence: None)
  Receive Date: 20070126
  Receipt Date: 20060901
  Transmission Date: 20070707
  Serious: No
  Sender: FDA-Public Use
  Company Number: 2006CT000816

PATIENT
  Age: 29 Year
  Sex: Female
  Weight: 63.5036 kg

DRUGS (5)
  1. VENTAVIS [Suspect]
     Indication: PULMONARY HYPERTENSION
     Dosage: 5 UG;5XD;INH
     Route: 055
     Dates: start: 20060911, end: 20061009
  2. PREDNISONE TAB [Concomitant]
  3. TOPROL-XL [Concomitant]
  4. ALPRAZOLAM [Concomitant]
  5. LASIX [Concomitant]

REACTIONS (2)
  - PAIN [None]
  - SYSTEMIC LUPUS ERYTHEMATOSUS [None]
